FAERS Safety Report 25858513 (Version 1)
Quarter: 2025Q3

REPORT INFORMATION
  Report Type: Spontaneous
  Country: EU (occurrence: EU)
  Receive Date: 20250929
  Receipt Date: 20250929
  Transmission Date: 20251021
  Serious: Yes (Other)
  Sender: PFIZER
  Company Number: EU-BAYER-2025A120906

PATIENT
  Age: 72 Year
  Sex: Male

DRUGS (5)
  1. DOCETAXEL [Suspect]
     Active Substance: DOCETAXEL
  2. DAROLUTAMIDE [Suspect]
     Active Substance: DAROLUTAMIDE
     Indication: Hormone-dependent prostate cancer
  3. SOLIFENACIN\TAMSULOSIN [Concomitant]
     Active Substance: SOLIFENACIN\TAMSULOSIN
     Indication: Lower urinary tract symptoms
  4. DEXTROMETHORPHAN HYDROBROMIDE/PARACETAMOL/PSEUDOEPHEDRINE SULFATE [Concomitant]
     Indication: Osteoarthritis
  5. NAPROXEN [Concomitant]
     Active Substance: NAPROXEN

REACTIONS (4)
  - Neurotoxicity [Unknown]
  - Skin fissures [Unknown]
  - Mucosal inflammation [Recovering/Resolving]
  - Asthenia [Unknown]
